FAERS Safety Report 8778304 (Version 1)
Quarter: 2012Q4

REPORT INFORMATION
  Report Type: 
  Country: DE (occurrence: DE)
  Receive Date: 20120912
  Receipt Date: 20120912
  Transmission Date: 20130627
  Serious: Yes (Disabling)
  Sender: FDA-Public Use
  Company Number: DE-ROCHE-1081364

PATIENT
  Sex: Male
  Weight: 80 kg

DRUGS (9)
  1. AVASTIN [Suspect]
     Indication: BREAST CANCER METASTATIC
     Route: 042
     Dates: start: 20100217, end: 20120626
  2. PACLITAXEL [Suspect]
     Indication: BREAST CANCER METASTATIC
     Route: 042
     Dates: start: 20100217, end: 20100920
  3. DEXAMETHASONE [Concomitant]
     Dosage: 20/8 mg
     Route: 042
     Dates: start: 20100217, end: 20100920
  4. ZOFRAN [Concomitant]
     Route: 042
     Dates: start: 20100217, end: 20100920
  5. RANITIDIN [Concomitant]
     Route: 042
     Dates: start: 20100217, end: 20100920
  6. FENISTIL [Concomitant]
     Route: 042
     Dates: start: 20100217, end: 20100920
  7. PANTOZOL [Concomitant]
     Route: 048
     Dates: start: 20100217, end: 20100920
  8. PASPERTIN [Concomitant]
     Route: 048
     Dates: start: 20100217, end: 20100920
  9. NEUROBION N [Concomitant]
     Route: 048
     Dates: start: 20100217, end: 20100920

REACTIONS (1)
  - Rash papular [Recovering/Resolving]
